FAERS Safety Report 6805312-X (Version None)
Quarter: 2010Q2

REPORT INFORMATION
  Report Type: 
  Country: None (occurrence: None)
  Receive Date: 20100628
  Receipt Date: 20071103
  Transmission Date: 20101027
  Serious: No
  Sender: FDA-Public Use
  Company Number: US-PFIZER INC-2007073909

PATIENT
  Sex: Female
  Weight: 81.65 kg

DRUGS (10)
  1. GEODON [Suspect]
     Indication: BIPOLAR DISORDER
     Dosage: EVERY NIGHT
     Dates: start: 20070628
  2. CITALOPRAM [Concomitant]
  3. BENICAR [Concomitant]
  4. HYDROCHLOROTHIAZIDE [Concomitant]
  5. PREVACID [Concomitant]
  6. LEVOTHYROXINE SODIUM [Concomitant]
  7. ACETYLSALICYLIC ACID [Concomitant]
  8. LUNESTA [Concomitant]
  9. FEXOFENADINE [Concomitant]
  10. ALL OTHER THERAPEUTIC PRODUCTS [Concomitant]

REACTIONS (1)
  - ELECTROCARDIOGRAM QT PROLONGED [None]
